FAERS Safety Report 4368656-X (Version None)
Quarter: 2004Q2

REPORT INFORMATION
  Report Type: 
  Country: None (occurrence: None)
  Receive Date: 20040602
  Receipt Date: 20040514
  Transmission Date: 20050107
  Serious: Yes (Hospitalization)
  Sender: FDA-Public Use
  Company Number: GB-AMGEN-UK076750

PATIENT
  Age: 45 Year
  Sex: Female
  Weight: 54 kg

DRUGS (6)
  1. KINERET [Suspect]
     Indication: RHEUMATOID ARTHRITIS
     Dosage: 100 MG, 1 IN 1 DAYS
     Dates: start: 20021003, end: 20021015
  2. ACETAMINOPHEN [Concomitant]
  3. ASCORBIC ACID [Concomitant]
  4. FERR0US SULFATE [Concomitant]
  5. METHOTREXATE [Concomitant]
  6. FOLIC ACID [Concomitant]

REACTIONS (1)
  - INJECTION SITE PUSTULE [None]
